FAERS Safety Report 6047703-3 (Version None)
Quarter: 2009Q1

REPORT INFORMATION
  Report Type: 
  Country: None (occurrence: None)
  Receive Date: 20090123
  Receipt Date: 20090119
  Transmission Date: 20090719
  Serious: Yes (Hospitalization)
  Sender: FDA-Public Use
  Company Number: US-JNJFOC-20090104461

PATIENT
  Age: 13 Year
  Sex: Male

DRUGS (1)
  1. INVEGA [Suspect]
     Indication: DRUG USE FOR UNKNOWN INDICATION
     Route: 048

REACTIONS (4)
  - DRUG ADMINISTRATION ERROR [None]
  - EXTREMITY NECROSIS [None]
  - LEG AMPUTATION [None]
  - RHABDOMYOLYSIS [None]
